FAERS Safety Report 12332136 (Version 1)
Quarter: 2016Q2

REPORT INFORMATION
  Report Type: Spontaneous
  Country: US (occurrence: US)
  Receive Date: 20160504
  Receipt Date: 20160504
  Transmission Date: 20160815
  Serious: No
  Sender: FDA-Public Use
  Company Number: US-ROCHE-1658590

PATIENT
  Sex: Female
  Weight: 78.09 kg

DRUGS (2)
  1. ESBRIET [Suspect]
     Active Substance: PIRFENIDONE
     Indication: IDIOPATHIC PULMONARY FIBROSIS
     Route: 048
     Dates: start: 20151015
  2. OXYGEN. [Concomitant]
     Active Substance: OXYGEN
     Dosage: AS NEEDED
     Route: 065

REACTIONS (6)
  - Nausea [Unknown]
  - Gastrointestinal disorder [Unknown]
  - Diarrhoea [Unknown]
  - Dizziness [Unknown]
  - Dyspepsia [Unknown]
  - Dysgeusia [Unknown]
